FAERS Safety Report 10401821 (Version 1)
Quarter: 2014Q3

REPORT INFORMATION
  Report Type: Spontaneous
  Country: GB (occurrence: GB)
  Receive Date: 20140822
  Receipt Date: 20140822
  Transmission Date: 20150326
  Serious: Yes (Life-Threatening, Hospitalization, Disabling, Other)
  Sender: FDA-Public Use
  Company Number: GB-RANBAXY-2014RR-84507

PATIENT
  Age: 43 Year
  Sex: Male
  Weight: 103 kg

DRUGS (3)
  1. FLUOXETINE [Suspect]
     Active Substance: FLUOXETINE\FLUOXETINE HYDROCHLORIDE
     Indication: CHRONIC FATIGUE SYNDROME
     Dosage: 20 MG, DAILY
     Route: 048
     Dates: start: 20140715, end: 20140724
  2. LISINOPRIL. [Concomitant]
     Active Substance: LISINOPRIL
     Indication: PRODUCT USED FOR UNKNOWN INDICATION
     Route: 065
  3. OMEPRAZOLE. [Concomitant]
     Active Substance: OMEPRAZOLE
     Indication: PRODUCT USED FOR UNKNOWN INDICATION
     Route: 065

REACTIONS (4)
  - Suicidal ideation [Recovered/Resolved]
  - Depression [Recovering/Resolving]
  - Anxiety [Recovered/Resolved]
  - Akathisia [Unknown]

NARRATIVE: CASE EVENT DATE: 20140720
